FAERS Safety Report 11233060 (Version 11)
Quarter: 2015Q4

REPORT INFORMATION
  Report Type: Spontaneous
  Country: US (occurrence: US)
  Receive Date: 20150701
  Receipt Date: 20151008
  Transmission Date: 20160304
  Serious: Yes (Life-Threatening, Hospitalization, Other)
  Sender: FDA-Public Use
  Company Number: PHHY2015US076718

PATIENT
  Sex: Female

DRUGS (25)
  1. BACLOFEN INTRATHECAL [Suspect]
     Active Substance: BACLOFEN
     Dosage: 110 MCG/DAY (AT CONCENTRATION OF 500 MCG/ML)
     Route: 037
  2. LODINE [Suspect]
     Active Substance: ETODOLAC
     Indication: PRODUCT USED FOR UNKNOWN INDICATION
     Dosage: 500 MG, TID
     Route: 048
  3. BACLOFEN. [Suspect]
     Active Substance: BACLOFEN
     Indication: PRODUCT USED FOR UNKNOWN INDICATION
     Dosage: 10 MG, Q8H
     Route: 048
  4. DILAUDID [Suspect]
     Active Substance: HYDROMORPHONE HYDROCHLORIDE
     Indication: PAIN
     Dosage: 2.2 MG/DAY
     Route: 037
     Dates: start: 20150330
  5. DILAUDID [Suspect]
     Active Substance: HYDROMORPHONE HYDROCHLORIDE
     Dosage: 2.2 MG/DAY
     Route: 037
  6. LEVOTHYROXINE. [Suspect]
     Active Substance: LEVOTHYROXINE
     Indication: PRODUCT USED FOR UNKNOWN INDICATION
     Dosage: 75 UG, QD
     Route: 065
  7. AVINZA//ESOMEPRAZOLE MAGNESIUM [Suspect]
     Active Substance: ESOMEPRAZOLE MAGNESIUM
     Indication: PRODUCT USED FOR UNKNOWN INDICATION
     Dosage: 30 MG, QD
     Route: 065
  8. PROTONIX [Suspect]
     Active Substance: PANTOPRAZOLE SODIUM
     Indication: PRODUCT USED FOR UNKNOWN INDICATION
     Dosage: 20 MG, QD
     Route: 065
  9. VOLTAREN [Suspect]
     Active Substance: DICLOFENAC SODIUM
     Indication: PRODUCT USED FOR UNKNOWN INDICATION
     Dosage: 1 %, PRN
     Route: 065
  10. CLONIDINE. [Suspect]
     Active Substance: CLONIDINE
     Dosage: 0.077 MG/DAY (AT CONCENTRATION OF 0.35 MG/ML)
     Route: 037
  11. CLONIDINE. [Suspect]
     Active Substance: CLONIDINE
     Dosage: 80.53 MCG/ DAY, (AT CONCENTRATION OF 350 MCG/ML)
     Route: 037
  12. CLONIDINE. [Suspect]
     Active Substance: CLONIDINE
     Dosage: 31.454 UG, QD (AT CONCENTRATION OF 350 MCG/ML)
     Route: 037
     Dates: start: 20150810
  13. LYRICA [Suspect]
     Active Substance: PREGABALIN
     Indication: PRODUCT USED FOR UNKNOWN INDICATION
     Dosage: 200 MG, Q8H
     Route: 048
  14. REQUIP [Suspect]
     Active Substance: ROPINIROLE HYDROCHLORIDE
     Indication: PRODUCT USED FOR UNKNOWN INDICATION
     Dosage: 3 MG, BID
     Route: 048
  15. JANUVIA [Suspect]
     Active Substance: SITAGLIPTIN PHOSPHATE
     Indication: PRODUCT USED FOR UNKNOWN INDICATION
     Dosage: 100 MG, QD
     Route: 048
  16. LIDODERM [Suspect]
     Active Substance: LIDOCAINE
     Indication: PRODUCT USED FOR UNKNOWN INDICATION
     Dosage: 5 %, UNK
     Route: 065
  17. BACLOFEN INTRATHECAL [Suspect]
     Active Substance: BACLOFEN
     Dosage: 115.04 MCG/DAY (AT CONCENTRATION OF 500 MCG/ML)
     Route: 037
  18. GLIPIZIDE. [Suspect]
     Active Substance: GLIPIZIDE
     Indication: PRODUCT USED FOR UNKNOWN INDICATION
     Dosage: 5 MG, BID
     Route: 065
  19. BUPIVACAINE [Suspect]
     Active Substance: BUPIVACAINE
     Dosage: 4.60 MG, QD
     Route: 037
  20. BACLOFEN INTRATHECAL [Suspect]
     Active Substance: BACLOFEN
     Indication: PAIN
     Dosage: 88.01 UG, QD (AT CONCENTRATION OF 400 MCG/ML)
     Route: 037
     Dates: start: 20150330
  21. BACLOFEN INTRATHECAL [Suspect]
     Active Substance: BACLOFEN
     Dosage: 44.93 UG, QD (AT CONCENTRATION OF 400 MCG/ML)
     Route: 037
     Dates: start: 20150810
  22. DILAUDID [Suspect]
     Active Substance: HYDROMORPHONE HYDROCHLORIDE
     Dosage: 0.899 MG, QD
     Route: 037
     Dates: start: 20150810
  23. BUPIVACAINE [Suspect]
     Active Substance: BUPIVACAINE
     Dosage: 1.797 MG, QD
     Route: 037
     Dates: start: 20150810
  24. CLONIDINE. [Suspect]
     Active Substance: CLONIDINE
     Indication: PRODUCT USED FOR UNKNOWN INDICATION
     Dosage: 0.06601 MG/ DAY, (AT CONCENTRATION OF 0.3 MG/ML)
     Route: 037
     Dates: start: 20150330
  25. BUPIVACAINE [Suspect]
     Active Substance: BUPIVACAINE
     Indication: PRODUCT USED FOR UNKNOWN INDICATION
     Dosage: 4.4 MG, QD
     Route: 037
     Dates: start: 20150330

REACTIONS (6)
  - Ankle fracture [Recovering/Resolving]
  - Pain [Recovered/Resolved]
  - Intentional overdose [Unknown]
  - Drug withdrawal syndrome [Unknown]
  - Somnolence [Unknown]
  - Fall [Unknown]
